FAERS Safety Report 23605637 (Version 1)
Quarter: 2024Q1

REPORT INFORMATION
  Report Type: Spontaneous
  Country: US (occurrence: US)
  Receive Date: 20240307
  Receipt Date: 20240307
  Transmission Date: 20240409
  Serious: Yes (Life-Threatening, Hospitalization)
  Sender: FDA-Public Use
  Company Number: US-MYLANLABS-2024M1020640

PATIENT
  Age: 71 Year
  Sex: Female

DRUGS (1)
  1. DAPSONE [Suspect]
     Active Substance: DAPSONE
     Indication: Pemphigoid
     Dosage: UNK
     Route: 065

REACTIONS (4)
  - Agranulocytosis [Recovering/Resolving]
  - Herpes simplex [Recovering/Resolving]
  - Pneumococcal infection [Recovering/Resolving]
  - Off label use [Unknown]
